FAERS Safety Report 25652896 (Version 2)
Quarter: 2025Q3

REPORT INFORMATION
  Report Type: Spontaneous
  Country: US (occurrence: US)
  Receive Date: 20250807
  Receipt Date: 20250902
  Transmission Date: 20251021
  Serious: Yes (Life-Threatening, Hospitalization)
  Sender: TEVA
  Company Number: US-TEVA-VS-3358276

PATIENT
  Age: 64 Year
  Sex: Male

DRUGS (7)
  1. EPINEPHRINE [Suspect]
     Active Substance: EPINEPHRINE
     Indication: Lip swelling
     Route: 065
  2. EPINEPHRINE [Suspect]
     Active Substance: EPINEPHRINE
     Indication: Swollen tongue
  3. LISINOPRIL [Suspect]
     Active Substance: LISINOPRIL
     Indication: Hypertension
     Route: 065
  4. FIRAZYR [Suspect]
     Active Substance: ICATIBANT ACETATE
     Indication: Lip swelling
     Route: 065
  5. FAMOTIDINE [Suspect]
     Active Substance: FAMOTIDINE
     Indication: Lip swelling
     Route: 065
  6. METHYLPREDNISOLONE [Suspect]
     Active Substance: METHYLPREDNISOLONE
     Indication: Lip swelling
     Route: 065
  7. DEVICE [Suspect]
     Active Substance: DEVICE
     Route: 065

REACTIONS (2)
  - Angioedema [Recovering/Resolving]
  - Drug ineffective [Unknown]
